FAERS Safety Report 7463451-7 (Version None)
Quarter: 2011Q2

REPORT INFORMATION
  Report Type: 
  Country: None (occurrence: None)
  Receive Date: 20110506
  Receipt Date: 20110428
  Transmission Date: 20111010
  Serious: Yes (Hospitalization)
  Sender: FDA-Public Use
  Company Number: B0717535A

PATIENT
  Age: 34 Year
  Sex: Male

DRUGS (1)
  1. MALARONE [Suspect]
     Indication: MALARIA PROPHYLAXIS
     Dosage: 250MG PER DAY
     Route: 048
     Dates: start: 20110415

REACTIONS (5)
  - PYREXIA [None]
  - MALARIA [None]
  - TREATMENT FAILURE [None]
  - MYALGIA [None]
  - OVERDOSE [None]
